FAERS Safety Report 4486675-X (Version None)
Quarter: 2004Q4

REPORT INFORMATION
  Report Type: 
  Country: None (occurrence: None)
  Receive Date: 20041021
  Receipt Date: 20041006
  Transmission Date: 20050328
  Serious: Yes (Hospitalization)
  Sender: FDA-Public Use
  Company Number: 2003149650FR

PATIENT
  Age: 54 Year
  Sex: Female
  Weight: 58 kg

DRUGS (3)
  1. DOXORUBICIN HCL [Suspect]
     Dosage: CYCLE 1
  2. CISPLATIN [Suspect]
     Dosage: CYCLE 1
  3. FLUOROURACIL [Suspect]
     Dosage: CYCLE 1

REACTIONS (2)
  - CEREBROVASCULAR ACCIDENT [None]
  - DISSEMINATED INTRAVASCULAR COAGULATION [None]
